FAERS Safety Report 14747168 (Version 1)
Quarter: 2018Q2

REPORT INFORMATION
  Report Type: Spontaneous
  Country: CA (occurrence: CA)
  Receive Date: 20180411
  Receipt Date: 20180411
  Transmission Date: 20180711
  Serious: Yes (Other)
  Sender: FDA-Public Use
  Company Number: CA-SA-2018SA098040

PATIENT
  Age: 68 Year
  Sex: Female

DRUGS (13)
  1. CELEBREX [Concomitant]
     Active Substance: CELECOXIB
     Route: 065
  2. METHOTREXATE. [Suspect]
     Active Substance: METHOTREXATE
     Route: 048
  3. ORENCIA [Suspect]
     Active Substance: ABATACEPT
     Route: 065
  4. SULFASALAZINE. [Suspect]
     Active Substance: SULFASALAZINE
     Indication: RHEUMATOID ARTHRITIS
     Route: 065
  5. ERGOCALCIFEROL. [Concomitant]
     Active Substance: ERGOCALCIFEROL
  6. ENBREL [Suspect]
     Active Substance: ETANERCEPT
     Indication: RHEUMATOID ARTHRITIS
     Route: 065
  7. LEFLUNOMIDE. [Suspect]
     Active Substance: LEFLUNOMIDE
     Route: 048
  8. HYDROXYCHLOROQUINE [Suspect]
     Active Substance: HYDROXYCHLOROQUINE
     Route: 048
  9. ERYTHROMYCIN. [Suspect]
     Active Substance: ERYTHROMYCIN
     Indication: RHEUMATOID ARTHRITIS
     Route: 065
  10. RISEDRONATE [Concomitant]
     Active Substance: RISEDRONATE SODIUM
     Route: 065
  11. HUMIRA [Suspect]
     Active Substance: ADALIMUMAB
     Indication: RHEUMATOID ARTHRITIS
     Dosage: FORM: SOLUTION SUBCUTANEOUS
     Route: 065
  12. MARIJUANA [Concomitant]
     Active Substance: CANNABIS SATIVA SUBSP. INDICA TOP
  13. WELLBUTRIN [Concomitant]
     Active Substance: BUPROPION HYDROCHLORIDE
     Route: 065

REACTIONS (13)
  - Foot deformity [Recovering/Resolving]
  - Nodule [Recovering/Resolving]
  - Stress [Recovering/Resolving]
  - Drug hypersensitivity [Recovering/Resolving]
  - Malaise [Recovering/Resolving]
  - Abdominal pain upper [Recovering/Resolving]
  - Bronchitis [Recovering/Resolving]
  - Cough [Recovering/Resolving]
  - Rheumatoid arthritis [Recovering/Resolving]
  - Influenza like illness [Recovering/Resolving]
  - Interstitial lung disease [Recovering/Resolving]
  - Drug ineffective [Unknown]
  - Drug intolerance [Unknown]
